FAERS Safety Report 14959047 (Version 2)
Quarter: 2018Q2

REPORT INFORMATION
  Report Type: Report from Study
  Country: None (occurrence: DE)
  Receive Date: 20180531
  Receipt Date: 20180611
  Transmission Date: 20180711
  Serious: Yes (Death)
  Sender: FDA-Public Use
  Company Number: DE-ABBVIE-18P-062-2370590-00

PATIENT
  Age: 19 Year
  Sex: Male
  Weight: 58 kg

DRUGS (9)
  1. STELARA [Concomitant]
     Active Substance: USTEKINUMAB
     Indication: CROHN^S DISEASE
     Route: 058
     Dates: start: 20180516
  2. FERINJECT [Concomitant]
     Active Substance: FERRIC CARBOXYMALTOSE
     Indication: CROHN^S DISEASE
     Route: 042
     Dates: start: 20180514, end: 20180514
  3. AZATHIOPRINE. [Suspect]
     Active Substance: AZATHIOPRINE
     Indication: CROHN^S DISEASE
     Route: 048
     Dates: start: 20080729
  4. REFOBACIN SALVE [Concomitant]
     Indication: OMPHALITIS
     Route: 048
     Dates: start: 20171020
  5. FURACIN SALVE 0,2% [Concomitant]
     Indication: OMPHALITIS
     Route: 061
     Dates: start: 20171201
  6. AMOXI-CLAVULAN 875 / 125 [Concomitant]
     Indication: OMPHALITIS
     Dosage: 875 / 125 MG 1 TABL
     Route: 048
     Dates: start: 20171201
  7. HUMIRA [Suspect]
     Active Substance: ADALIMUMAB
     Indication: CROHN^S DISEASE
     Route: 058
     Dates: start: 20141007, end: 20170623
  8. HUMIRA [Suspect]
     Active Substance: ADALIMUMAB
     Route: 058
     Dates: start: 20170630, end: 20180504
  9. VIGANTOLETTE [Concomitant]
     Indication: ANTIBIOTIC PROPHYLAXIS
     Route: 048
     Dates: start: 20141208

REACTIONS (1)
  - Death [Fatal]

NARRATIVE: CASE EVENT DATE: 20180526
